FAERS Safety Report 18199000 (Version 3)
Quarter: 2021Q4

REPORT INFORMATION
  Report Type: Spontaneous
  Country: US (occurrence: US)
  Receive Date: 20200826
  Receipt Date: 20211116
  Transmission Date: 20220303
  Serious: Yes (Disabling, Other)
  Sender: FDA-Public Use
  Company Number: US-PURDUE-USA-2020-0162778

PATIENT
  Sex: Female

DRUGS (2)
  1. MORPHINE SULFATE [Suspect]
     Active Substance: MORPHINE SULFATE
     Indication: Product used for unknown indication
     Dosage: UNK
     Route: 065
  2. LORCET [Suspect]
     Active Substance: ACETAMINOPHEN\HYDROCODONE BITARTRATE
     Indication: Product used for unknown indication
     Dosage: UNK
     Route: 065

REACTIONS (37)
  - Loss of consciousness [Unknown]
  - Nephrotic syndrome [Unknown]
  - Impaired work ability [Unknown]
  - Hallucination [Unknown]
  - Protein deficiency [Unknown]
  - Head injury [Unknown]
  - Headache [Unknown]
  - Dermatitis allergic [Unknown]
  - Asthma [Unknown]
  - Dizziness [Unknown]
  - Mood altered [Unknown]
  - Abdominal pain [Unknown]
  - Abdominal discomfort [Unknown]
  - Oropharyngeal pain [Unknown]
  - Tremor [Unknown]
  - Gait disturbance [Unknown]
  - Vomiting [Unknown]
  - Respiration abnormal [Unknown]
  - Limb injury [Unknown]
  - Lower limb fracture [Unknown]
  - Upper limb fracture [Unknown]
  - Skin reaction [Unknown]
  - Purpura [Unknown]
  - Rash [Unknown]
  - Urticaria [Unknown]
  - Skin exfoliation [Unknown]
  - Mouth swelling [Unknown]
  - Fatigue [Unknown]
  - Paraesthesia [Unknown]
  - Pyrexia [Unknown]
  - Contusion [Unknown]
  - Dysarthria [Unknown]
  - Oedema [Unknown]
  - Decreased appetite [None]
  - Frustration tolerance decreased [Unknown]
  - Muscle spasms [Unknown]
  - Muscle twitching [Unknown]
